FAERS Safety Report 9459812 (Version 1)
Quarter: 2013Q3

REPORT INFORMATION
  Report Type: Spontaneous
  Country: US (occurrence: US)
  Receive Date: 20130815
  Receipt Date: 20130815
  Transmission Date: 20140515
  Serious: Yes (Other)
  Sender: FDA-Public Use
  Company Number: US-PFIZER INC-2013235738

PATIENT
  Age: 53 Year
  Sex: Female
  Weight: 52.15 kg

DRUGS (2)
  1. RELPAX [Suspect]
     Indication: MIGRAINE
     Dosage: 20 MG, UNK
  2. IMITREX [Suspect]
     Indication: MIGRAINE
     Dosage: UNK

REACTIONS (5)
  - Joint injury [Unknown]
  - Drug ineffective [Unknown]
  - Gastric disorder [Recovered/Resolved]
  - Somnolence [Recovered/Resolved]
  - Medication overuse headache [Recovered/Resolved]
